FAERS Safety Report 6761105-3 (Version None)
Quarter: 2010Q2

REPORT INFORMATION
  Report Type: 
  Country: None (occurrence: None)
  Receive Date: 20100608
  Receipt Date: 20100525
  Transmission Date: 20101027
  Serious: Yes (Hospitalization, Other)
  Sender: FDA-Public Use
  Company Number: US-ELI_LILLY_AND_COMPANY-US201005007431

PATIENT
  Sex: Female

DRUGS (3)
  1. FORTEO [Suspect]
     Indication: OSTEOPOROSIS
     Dosage: 20 MG, DAILY (1/D)
     Dates: start: 20100101
  2. BENICAR [Concomitant]
  3. VITAMIN TAB [Concomitant]

REACTIONS (4)
  - ABDOMINAL ADHESIONS [None]
  - LOSS OF CONSCIOUSNESS [None]
  - SMALL INTESTINAL OBSTRUCTION [None]
  - VOMITING [None]
